FAERS Safety Report 9109680 (Version 1)
Quarter: 2013Q1

REPORT INFORMATION
  Report Type: Spontaneous
  Country: JP (occurrence: JP)
  Receive Date: 20130222
  Receipt Date: 20130222
  Transmission Date: 20140127
  Serious: Yes (Life-Threatening, Other)
  Sender: FDA-Public Use
  Company Number: JP-BRISTOL-MYERS SQUIBB COMPANY-17341066

PATIENT
  Age: 71 Year
  Sex: Male

DRUGS (1)
  1. HYDREA [Suspect]
     Indication: THROMBOCYTOSIS

REACTIONS (1)
  - Anaemia [Not Recovered/Not Resolved]
